FAERS Safety Report 4999396-1 (Version None)
Quarter: 2006Q2

REPORT INFORMATION
  Report Type: 
  Country: None (occurrence: None)
  Receive Date: 20060509
  Receipt Date: 20060509
  Transmission Date: 20061013
  Serious: Yes (Life-Threatening)
  Sender: FDA-Public Use
  Company Number: None

PATIENT
  Age: 62 Year
  Sex: Male
  Weight: 74 kg

DRUGS (11)
  1. INSULIN [Suspect]
     Indication: WRONG DRUG ADMINISTERED
     Dosage: 20CC/HR  IV
     Route: 042
     Dates: start: 20050907, end: 20050908
  2. MAGNESIUM OXIDE [Concomitant]
  3. HEPARIN [Concomitant]
  4. LANSOPRAZOLE [Concomitant]
  5. DOCUSATE [Concomitant]
  6. FENTANYL [Concomitant]
  7. DAPSONE [Concomitant]
  8. MEROPENEM [Concomitant]
  9. AMLODIPINE [Concomitant]
  10. RISPERIDONE [Concomitant]
  11. CYCLOSPORINE [Concomitant]

REACTIONS (3)
  - HYPOGLYCAEMIA [None]
  - LOSS OF CONSCIOUSNESS [None]
  - WRONG DRUG ADMINISTERED [None]
